FAERS Safety Report 8618974-1 (Version None)
Quarter: 2012Q3

REPORT INFORMATION
  Report Type: 
  Country: None (occurrence: None)
  Receive Date: 20120824
  Receipt Date: 20120820
  Transmission Date: 20120928
  Serious: Yes (Other)
  Sender: FDA-Public Use
  Company Number: PHHY2011CA68508

PATIENT
  Sex: Female

DRUGS (5)
  1. IRBESARTAN [Concomitant]
     Dosage: 225 MG, QOD
  2. PANTOPRAZOLE [Suspect]
     Dosage: 4 MG, DAILY
  3. SANDOSTATIN LAR [Suspect]
     Indication: CARCINOID TUMOUR
     Dosage: 30 MG EVERY 2 WEEKS
     Route: 030
     Dates: start: 20031001
  4. SANDOSTATIN LAR [Suspect]
     Dosage: 30 MG EVERY 4 WEEKS
     Route: 030
  5. SANDOSTATIN LAR [Suspect]
     Dosage: 30 MG, EVERY 2 WEEKS
     Route: 030

REACTIONS (10)
  - BLOOD PRESSURE INCREASED [None]
  - DIZZINESS [None]
  - DIARRHOEA [None]
  - HYPERTENSION [None]
  - HAEMOGLOBIN DECREASED [None]
  - ABSCESS RUPTURE [None]
  - WEIGHT DECREASED [None]
  - FLATULENCE [None]
  - FISTULA [None]
  - PAINFUL DEFAECATION [None]
